FAERS Safety Report 6821350-5 (Version None)
Quarter: 2010Q3

REPORT INFORMATION
  Report Type: 
  Country: None (occurrence: None)
  Receive Date: 20100707
  Receipt Date: 20080711
  Transmission Date: 20110219
  Serious: No
  Sender: FDA-Public Use
  Company Number: US-PFIZER INC-2008058259

PATIENT
  Sex: Female
  Weight: 64 kg

DRUGS (3)
  1. SERTRALINE [Suspect]
     Indication: DEPRESSION
     Route: 048
     Dates: start: 20080601
  2. LEVOXYL [Concomitant]
     Indication: HYPOTHYROIDISM
  3. ANASTROZOLE [Concomitant]
     Indication: BREAST CANCER

REACTIONS (2)
  - MUSCLE TIGHTNESS [None]
  - TREMOR [None]
